FAERS Safety Report 19900094 (Version 1)
Quarter: 2021Q3

REPORT INFORMATION
  Report Type: Spontaneous
  Country: JP (occurrence: JP)
  Receive Date: 20210930
  Receipt Date: 20210930
  Transmission Date: 20211014
  Serious: Yes (Death, Hospitalization, Other)
  Sender: FDA-Public Use
  Company Number: JP-GLAXOSMITHKLINE-JP2021JPN203186

PATIENT
  Age: 3 Decade
  Sex: Female
  Weight: 43.7 kg

DRUGS (12)
  1. CARBAMAZEPINE. [Suspect]
     Active Substance: CARBAMAZEPINE
     Indication: TEMPORAL LOBE EPILEPSY
     Dosage: 750 MG, 1D
     Route: 048
  2. PHENYTOIN. [Suspect]
     Active Substance: PHENYTOIN
     Indication: TEMPORAL LOBE EPILEPSY
  3. ZONISAMIDE. [Suspect]
     Active Substance: ZONISAMIDE
     Indication: TEMPORAL LOBE EPILEPSY
  4. TOPIRAMATE. [Suspect]
     Active Substance: TOPIRAMATE
     Indication: TEMPORAL LOBE EPILEPSY
  5. LAMICTAL [Suspect]
     Active Substance: LAMOTRIGINE
     Indication: TEMPORAL LOBE EPILEPSY
  6. CLOBAZAM. [Suspect]
     Active Substance: CLOBAZAM
     Indication: TEMPORAL LOBE EPILEPSY
  7. ACETAZOLAMIDE. [Suspect]
     Active Substance: ACETAZOLAMIDE
     Indication: TEMPORAL LOBE EPILEPSY
  8. PHENOBARBITAL. [Suspect]
     Active Substance: PHENOBARBITAL
     Indication: TEMPORAL LOBE EPILEPSY
     Dosage: 60 MG, 1D
     Route: 048
  9. VALPROATE SODIUM. [Suspect]
     Active Substance: VALPROATE SODIUM
     Indication: TEMPORAL LOBE EPILEPSY
  10. INSULIN [Concomitant]
     Active Substance: INSULIN NOS
  11. LEVETIRACETAM. [Suspect]
     Active Substance: LEVETIRACETAM
     Indication: TEMPORAL LOBE EPILEPSY
  12. GABAPENTIN. [Suspect]
     Active Substance: GABAPENTIN
     Indication: TEMPORAL LOBE EPILEPSY

REACTIONS (28)
  - Acute kidney injury [Unknown]
  - Metabolic encephalopathy [Unknown]
  - Fall [Unknown]
  - Pyrexia [Unknown]
  - Inflammation [Unknown]
  - Hypophosphataemia [Unknown]
  - Hyperkalaemia [Unknown]
  - Pyelonephritis [Unknown]
  - Sinus arrest [Unknown]
  - Haematoma [Unknown]
  - Abdominal pain [Unknown]
  - Adverse drug reaction [Unknown]
  - Bradyarrhythmia [Fatal]
  - Diabetes mellitus inadequate control [Unknown]
  - Shock [Unknown]
  - Hypoxia [Unknown]
  - Malaise [Unknown]
  - Pelvic fracture [Unknown]
  - Altered state of consciousness [Recovering/Resolving]
  - Hypomagnesaemia [Unknown]
  - Haematoma infection [Unknown]
  - Septic shock [Unknown]
  - Cardiac arrest [Recovering/Resolving]
  - Epilepsy [Unknown]
  - Pancreatitis acute [Unknown]
  - Refeeding syndrome [Unknown]
  - Decreased appetite [Unknown]
  - Pancreatic enlargement [Unknown]
